FAERS Safety Report 17281948 (Version 1)
Quarter: 2020Q1

REPORT INFORMATION
  Report Type: Spontaneous
  Country: UM (occurrence: UM)
  Receive Date: 20191230
  Receipt Date: 20191230
  Transmission Date: 20200409
  Serious: Yes (Death)
  Sender: FDA-Public Use
  Company Number: None

PATIENT
  Age: 63 Year
  Sex: Male
  Weight: 73.2 kg

DRUGS (2)
  1. NIVOLUMAB 240MG [Suspect]
     Active Substance: NIVOLUMAB
     Indication: GLIOBLASTOMA
     Dosage: ?          OTHER FREQUENCY:EVERY2WEEKS ;?
     Route: 042
     Dates: start: 20190805, end: 20190820
  2. BEVACIZUMAB 200MG [Suspect]
     Active Substance: BEVACIZUMAB
     Dates: start: 20190805, end: 20190820

REACTIONS (1)
  - Disease progression [None]

NARRATIVE: CASE EVENT DATE: 20191206
